FAERS Safety Report 9387071 (Version 2)
Quarter: 2013Q3

REPORT INFORMATION
  Report Type: Report from Study
  Country: PH (occurrence: PH)
  Receive Date: 20130708
  Receipt Date: 20130710
  Transmission Date: 20140515
  Serious: Yes (Hospitalization, Disabling)
  Sender: FDA-Public Use
  Company Number: PHHO2012PH006218

PATIENT
  Age: 46 Year
  Sex: Male
  Weight: 74.3 kg

DRUGS (14)
  1. BLINDED ENALAPRIL [Suspect]
     Indication: CARDIAC FAILURE CHRONIC
     Dosage: CODE NOT BROKEN
     Route: 048
     Dates: start: 20110530, end: 20120413
  2. BLINDED LCZ696 [Suspect]
     Indication: CARDIAC FAILURE CHRONIC
     Dosage: CODE NOT BROKEN
     Route: 048
     Dates: start: 20110530, end: 20120413
  3. BLINDED NO TREATMENT RECEIVED [Suspect]
     Indication: CARDIAC FAILURE CHRONIC
     Dosage: CODE NOT BROKEN
     Route: 048
     Dates: start: 20110530, end: 20120413
  4. LASIX [Suspect]
     Indication: DIURETIC THERAPY
     Dosage: 40 MG,1/2 TABLET,QD
     Route: 048
     Dates: start: 20101112, end: 20120411
  5. CARVEDILOL [Suspect]
     Indication: ARRHYTHMIA
     Dosage: 6.25 MG, TID
  6. LANOXIN [Concomitant]
     Indication: ARRHYTHMIA
     Dosage: 0.25 MG, 1/2 TABLET, QD
  7. COQ10 [Concomitant]
     Indication: SUPPLEMENTATION THERAPY
     Dosage: 1 DF, BID
  8. ASPIRIN [Concomitant]
     Dosage: 80 MG, QD
  9. CARDIGOX [Concomitant]
     Dosage: 1 DF, TID
  10. ISDN [Concomitant]
     Dosage: 5 MG, UNK
     Route: 060
  11. ASA [Concomitant]
     Indication: ANTIPLATELET THERAPY
     Dosage: 80 MG, QD
  12. DOBUTAMINE [Concomitant]
     Indication: BLOOD PRESSURE INCREASED
     Dosage: UNK
     Route: 042
     Dates: start: 20120412
  13. DOPAMINE [Concomitant]
     Indication: BLOOD PRESSURE INCREASED
     Dosage: UNK
     Route: 042
     Dates: start: 20120412
  14. LEVOPHED [Concomitant]
     Indication: BLOOD PRESSURE INCREASED
     Dosage: UNK
     Route: 042
     Dates: start: 20120412

REACTIONS (3)
  - Ischaemic cardiomyopathy [Recovered/Resolved]
  - Disease progression [Unknown]
  - Renal failure chronic [Not Recovered/Not Resolved]
